FAERS Safety Report 15141675 (Version 3)
Quarter: 2018Q3

REPORT INFORMATION
  Report Type: Spontaneous
  Country: NZ (occurrence: NZ)
  Receive Date: 20180713
  Receipt Date: 20180911
  Transmission Date: 20181010
  Serious: Yes (Death)
  Sender: FDA-Public Use
  Company Number: NZ-PFIZER INC-2018281695

PATIENT
  Age: 72 Year
  Sex: Female
  Weight: 50 kg

DRUGS (3)
  1. PREGABALIN. [Suspect]
     Active Substance: PREGABALIN
     Indication: PAIN
     Dosage: 75 MG, 2X/DAY
     Route: 048
     Dates: start: 20180530, end: 20180601
  2. MORPHINE HYDROCHLORIDE [Concomitant]
     Active Substance: MORPHINE HYDROCHLORIDE
     Indication: PAIN
     Dosage: 30 MG, 2X/DAY
     Route: 048
     Dates: start: 201804
  3. THYROXINE [Concomitant]
     Active Substance: LEVOTHYROXINE
     Dosage: UNK

REACTIONS (6)
  - Dizziness [Unknown]
  - Product use in unapproved indication [Unknown]
  - Somnolence [Unknown]
  - Chest pain [Recovered/Resolved]
  - Neoplasm progression [Fatal]
  - Confusional state [Recovered/Resolved]

NARRATIVE: CASE EVENT DATE: 2018
